FAERS Safety Report 7404254-9 (Version None)
Quarter: 2011Q2

REPORT INFORMATION
  Report Type: 
  Country: None (occurrence: None)
  Receive Date: 20110408
  Receipt Date: 20110404
  Transmission Date: 20111010
  Serious: Yes (Death, Hospitalization, Other)
  Sender: FDA-Public Use
  Company Number: PHEH2009US01612

PATIENT
  Sex: Male
  Weight: 90.703 kg

DRUGS (52)
  1. PROTONIX [Concomitant]
     Dosage: 40MG,
  2. VOLMAX [Concomitant]
     Dosage: 4MG,
  3. DIGOXIN [Concomitant]
  4. MULTI-VITAMINS [Concomitant]
  5. KLOR-CON [Concomitant]
  6. CYMBALTA [Concomitant]
  7. ADVIL LIQUI-GELS [Concomitant]
  8. AUGMENTIN '125' [Concomitant]
  9. ATARAX [Concomitant]
  10. TRILEPTAL [Concomitant]
  11. PROCRIT                            /00909301/ [Concomitant]
     Dosage: UNK, WEEKLY
  12. VINCRISTINE [Concomitant]
     Dosage: UNK
     Dates: start: 19990501
  13. ADRIAMYCIN PFS [Concomitant]
     Dosage: UNK
     Dates: start: 19950501
  14. OXYCONTIN [Concomitant]
  15. GABAPENTIN [Concomitant]
  16. TIMOLOL [Concomitant]
     Dosage: UNK
  17. FOSAMAX [Concomitant]
  18. PULMICORT [Concomitant]
  19. METFORMIN [Concomitant]
  20. EPOGEN [Concomitant]
     Dosage: UNK, WEEKLY
  21. LEVAQUIN [Concomitant]
  22. FUROSEMIDE [Concomitant]
  23. ASPIRIN [Concomitant]
  24. NASACORT [Concomitant]
     Dosage: UNK
     Route: 045
  25. AREDIA [Suspect]
     Dosage: UNK
     Dates: start: 19990101, end: 20040101
  26. NEURONTIN [Concomitant]
     Dosage: 300MG,
  27. CYTOXAN [Concomitant]
     Dosage: UNK
     Dates: start: 19990501
  28. SUBOXONE [Concomitant]
  29. DETROL [Concomitant]
  30. LUPRON [Concomitant]
  31. ZYRTEC [Concomitant]
  32. IPRATROPIUM BROMIDE [Concomitant]
     Dosage: UNK
  33. POLYGAM S/D [Concomitant]
     Dosage: UNK
     Dates: start: 19991201
  34. THALIDOMIDE [Concomitant]
     Dosage: UNK
     Dates: start: 20000101
  35. ZYRTEC [Concomitant]
  36. LIDODERM [Concomitant]
  37. ULTRAM [Concomitant]
  38. LANOXIN [Concomitant]
  39. ALPHAGAN [Concomitant]
     Dosage: UNK
  40. ALTACE [Concomitant]
     Dosage: 2.5MG,
  41. ELAVIL [Concomitant]
     Dosage: 25MG,
  42. VANCOMYCIN [Concomitant]
     Dosage: UNK
     Dates: start: 19990501
  43. ENBREL [Concomitant]
     Dosage: UNK
     Dates: start: 20000701
  44. FLOMAX [Concomitant]
  45. FAMVIR                                  /NET/ [Concomitant]
  46. ATROVENT [Concomitant]
     Dosage: UNK
     Route: 045
  47. ZOMETA [Suspect]
     Dosage: UNK
     Dates: start: 20040101
  48. ZOLOFT [Concomitant]
     Dosage: 50MG,
  49. COREG [Concomitant]
  50. MEGESTROL ACETATE [Concomitant]
  51. JANUVIA [Concomitant]
  52. NEXIUM [Concomitant]

REACTIONS (82)
  - BONE DENSITY DECREASED [None]
  - ANAEMIA [None]
  - PANCYTOPENIA [None]
  - RENAL CYST [None]
  - HIATUS HERNIA [None]
  - SYNCOPE [None]
  - HAEMANGIOMA OF LIVER [None]
  - ABDOMINAL PAIN UPPER [None]
  - HYPOGAMMAGLOBULINAEMIA [None]
  - ATRIAL FIBRILLATION [None]
  - DIVERTICULUM INTESTINAL [None]
  - GASTRITIS [None]
  - WEIGHT DECREASED [None]
  - CARDIAC MURMUR [None]
  - EROSIVE DUODENITIS [None]
  - OESOPHAGITIS [None]
  - CATARACT [None]
  - OSTEOMYELITIS [None]
  - PAIN [None]
  - RASH [None]
  - PARAESTHESIA [None]
  - NEUROPATHY PERIPHERAL [None]
  - PROSTATIC SPECIFIC ANTIGEN INCREASED [None]
  - MICTURITION URGENCY [None]
  - ACNE [None]
  - ECZEMA NUMMULAR [None]
  - MULTIPLE MYELOMA [None]
  - TOOTH LOSS [None]
  - SINUSITIS [None]
  - CARDIOMEGALY [None]
  - FALL [None]
  - PNEUMONIA [None]
  - TRANSIENT ISCHAEMIC ATTACK [None]
  - URINARY INCONTINENCE [None]
  - BASAL CELL CARCINOMA [None]
  - HYPERKERATOSIS [None]
  - OSTEONECROSIS OF JAW [None]
  - DIABETES MELLITUS [None]
  - CEREBROVASCULAR ACCIDENT [None]
  - ASTHMA [None]
  - VENTRICULAR EXTRASYSTOLES [None]
  - CHEST PAIN [None]
  - DECREASED APPETITE [None]
  - MITRAL VALVE INCOMPETENCE [None]
  - TRICUSPID VALVE INCOMPETENCE [None]
  - NEOPLASM MALIGNANT [None]
  - FAILURE TO THRIVE [None]
  - MASS [None]
  - DEEP VEIN THROMBOSIS [None]
  - OPEN FRACTURE [None]
  - PULMONARY EMBOLISM [None]
  - GASTRIC POLYPS [None]
  - SUPRAVENTRICULAR EXTRASYSTOLES [None]
  - PRURITUS [None]
  - VOMITING [None]
  - OSTEOPOROSIS [None]
  - BODY MASS INDEX INCREASED [None]
  - GINGIVAL INFECTION [None]
  - ASTHENIA [None]
  - DYSPNOEA [None]
  - SPINAL COMPRESSION FRACTURE [None]
  - HERPES ZOSTER [None]
  - NEURALGIA [None]
  - HYPERLIPIDAEMIA [None]
  - BUNDLE BRANCH BLOCK RIGHT [None]
  - URTICARIA [None]
  - XEROSIS [None]
  - PYODERMA [None]
  - LOOSE TOOTH [None]
  - SPINAL OSTEOARTHRITIS [None]
  - ARTERIOSCLEROSIS [None]
  - CORONARY ARTERY DISEASE [None]
  - MYOCARDIAL INFARCTION [None]
  - FATIGUE [None]
  - GAIT DISTURBANCE [None]
  - NAUSEA [None]
  - PAIN IN JAW [None]
  - ORTHOSTATIC HYPOTENSION [None]
  - CONFUSIONAL STATE [None]
  - HYPOAESTHESIA [None]
  - ERECTILE DYSFUNCTION [None]
  - URINARY RETENTION [None]
